FAERS Safety Report 22023144 (Version 1)
Quarter: 2023Q1

REPORT INFORMATION
  Report Type: Spontaneous
  Country: US (occurrence: US)
  Receive Date: 20230223
  Receipt Date: 20230223
  Transmission Date: 20230418
  Serious: No
  Sender: FDA-Public Use
  Company Number: US-BRACCO-2022US01975

PATIENT

DRUGS (1)
  1. ISOVUE [Suspect]
     Active Substance: IOPAMIDOL
     Indication: Diagnostic procedure
     Dosage: UNK, SINGLE
     Route: 058

REACTIONS (3)
  - Medication error [Unknown]
  - Incorrect route of product administration [Unknown]
  - Injection site extravasation [Unknown]
